FAERS Safety Report 13371320 (Version 5)
Quarter: 2017Q2

REPORT INFORMATION
  Report Type: Spontaneous
  Country: CN (occurrence: CN)
  Receive Date: 20170324
  Receipt Date: 20170505
  Transmission Date: 20170830
  Serious: Yes (Hospitalization)
  Sender: FDA-Public Use
  Company Number: CN-ARALEZ PHARMACEUTICALS R+D INC.-ARA-TP-CN-2017-171

PATIENT
  Age: 76 Year
  Sex: Female

DRUGS (10)
  1. METOPROLOL SUCCINATE. [Suspect]
     Active Substance: METOPROLOL SUCCINATE
     Indication: PRODUCT USED FOR UNKNOWN INDICATION
     Route: 048
     Dates: start: 2017, end: 2017
  2. BETALOC [Suspect]
     Active Substance: METOPROLOL TARTRATE
  3. PLENDIL [Suspect]
     Active Substance: FELODIPINE
     Indication: PRODUCT USED FOR UNKNOWN INDICATION
     Dosage: EVERY MORNING
     Route: 048
  4. TALCOM [Concomitant]
     Active Substance: CLOPIDOGREL BISULFATE
     Indication: PRODUCT USED FOR UNKNOWN INDICATION
  5. ATORVASTATIN [Concomitant]
     Active Substance: ATORVASTATIN
     Indication: PRODUCT USED FOR UNKNOWN INDICATION
  6. BETALOC [Suspect]
     Active Substance: METOPROLOL TARTRATE
     Indication: BLOOD PRESSURE DECREASED
     Dates: start: 2010
  7. BETALOC [Suspect]
     Active Substance: METOPROLOL TARTRATE
  8. ADALAT [Concomitant]
     Active Substance: NIFEDIPINE
     Indication: HYPERTENSION
  9. BAYASPIRIN [Concomitant]
     Active Substance: ASPIRIN
     Indication: PRODUCT USED FOR UNKNOWN INDICATION
  10. ISOSORBIDE MONONITRATE. [Concomitant]
     Active Substance: ISOSORBIDE MONONITRATE
     Indication: PRODUCT USED FOR UNKNOWN INDICATION

REACTIONS (14)
  - Pollakiuria [Not Recovered/Not Resolved]
  - Suffocation feeling [Unknown]
  - Myocardial infarction [Unknown]
  - Hypertension [Unknown]
  - Blood uric acid increased [Unknown]
  - Decreased appetite [Recovered/Resolved]
  - Blood pressure decreased [Unknown]
  - Blood cholesterol increased [Unknown]
  - Heart rate increased [Not Recovered/Not Resolved]
  - Carbon dioxide increased [Unknown]
  - Gamma-glutamyltransferase increased [Unknown]
  - Insomnia [Not Recovered/Not Resolved]
  - Blood creatine phosphokinase decreased [Unknown]
  - Therapy cessation [Unknown]

NARRATIVE: CASE EVENT DATE: 201701
